FAERS Safety Report 7606162-7 (Version None)
Quarter: 2011Q3

REPORT INFORMATION
  Report Type: 
  Country: None (occurrence: None)
  Receive Date: 20110713
  Receipt Date: 20110707
  Transmission Date: 20111222
  Serious: Yes (Death, Hospitalization)
  Sender: FDA-Public Use
  Company Number: IT-CELGENEUS-083-C5013-11051038

PATIENT
  Sex: Male
  Weight: 90 kg

DRUGS (29)
  1. DEXAMETHASONE [Suspect]
     Dosage: 40 MILLIGRAM
     Route: 065
     Dates: start: 20100119, end: 20100216
  2. ASCRIPTIN [Concomitant]
     Dosage: 300 MILLIGRAM
     Route: 048
     Dates: start: 20100710, end: 20100920
  3. CARDICOR [Concomitant]
     Dosage: 1.25 MILLIGRAM
     Route: 048
     Dates: start: 20110225, end: 20110430
  4. LENALIDOMIDE [Suspect]
     Dosage: 7.5 MILLIGRAM
     Route: 048
     Dates: start: 20100217, end: 20100319
  5. LANSOPRAZOLE [Concomitant]
     Indication: PROPHYLAXIS
     Dosage: 30 MILLIGRAM
     Route: 048
     Dates: start: 20110101, end: 20110104
  6. TRIMETOPRIMA [Concomitant]
     Indication: INFECTION PROPHYLAXIS
     Dosage: 320 MILLIGRAM
     Route: 048
     Dates: start: 20091124, end: 20110430
  7. KAYEXALATE [Concomitant]
     Dosage: 1 MEASURING CUP
     Route: 048
     Dates: start: 20100416, end: 20110430
  8. COUMADIN [Concomitant]
     Indication: THROMBOSIS PROPHYLAXIS
     Dosage: ACCORDING TO INR
     Route: 048
     Dates: start: 20100921, end: 20110430
  9. ELG [Concomitant]
     Indication: CONSTIPATION
     Route: 048
     Dates: start: 20100820, end: 20110430
  10. LEXOTAN [Concomitant]
     Dosage: 1.5 MILLIGRAM
     Route: 048
     Dates: start: 20091001, end: 20110430
  11. ASCRIPTIN [Concomitant]
     Indication: THROMBOSIS PROPHYLAXIS
     Dosage: 300 MILLIGRAM
     Route: 048
     Dates: start: 20091001, end: 20100702
  12. D3 VITAMIN [Concomitant]
     Indication: HYPERTHYROIDISM
     Dosage: 2.8571 DROPS
     Route: 048
     Dates: start: 20110225, end: 20110430
  13. LENALIDOMIDE [Suspect]
     Dosage: 7.5 MILLIGRAM
     Route: 048
     Dates: start: 20100119, end: 20100216
  14. DEXAMETHASONE [Suspect]
     Indication: MULTIPLE MYELOMA
     Dosage: 40 MILLIGRAM
     Route: 065
     Dates: start: 20091124
  15. CARDICOR [Concomitant]
     Indication: HYPERTENSION
     Dosage: 2.5 MILLIGRAM
     Route: 048
     Dates: start: 20091001, end: 20110224
  16. ANAFRANIL [Concomitant]
     Indication: DEPRESSION
     Dosage: 50 MILLIGRAM
     Route: 048
     Dates: start: 20091001, end: 20110430
  17. LANSOPRAZOLE [Concomitant]
     Indication: VOMITING
     Dosage: 60 MILLIGRAM
     Route: 048
     Dates: start: 20110105, end: 20110109
  18. LENALIDOMIDE [Suspect]
     Indication: MULTIPLE MYELOMA
     Dosage: 7.5 MILLIGRAM
     Route: 048
     Dates: start: 20091124
  19. DEXAMETHASONE [Suspect]
     Dosage: 40 MILLIGRAM
     Route: 065
     Dates: start: 20100217, end: 20100319
  20. DEXAMETHASONE [Suspect]
     Dosage: 40 MILLIGRAM
     Route: 065
     Dates: start: 20110408, end: 20110428
  21. AVODART [Concomitant]
     Dosage: .5 MILLIGRAM
     Route: 048
     Dates: start: 20060101, end: 20110430
  22. ALFUZOSIN HCL [Concomitant]
     Dosage: 10 MILLIGRAM
     Route: 048
     Dates: start: 20060101, end: 20110430
  23. LANSOPRAZOLE [Concomitant]
     Dosage: 30 MILLIGRAM
     Route: 048
     Dates: start: 20110110, end: 20110430
  24. LENALIDOMIDE [Suspect]
     Dosage: 7.5 MILLIGRAM
     Route: 048
     Dates: start: 20110408, end: 20110428
  25. COUMADIN [Concomitant]
  26. SULFAMETHOXAZOLE [Concomitant]
     Indication: INFECTION PROPHYLAXIS
     Dosage: 228.5714 MILLIGRAM
     Route: 048
     Dates: start: 20091124, end: 20110430
  27. LATTULOSIO [Concomitant]
     Indication: CONSTIPATION
     Dosage: 2 SPOONS
     Route: 048
     Dates: start: 20100820, end: 20110430
  28. EPREX [Concomitant]
     Dosage: 4000 IU (INTERNATIONAL UNIT)
     Route: 058
     Dates: start: 20101111
  29. LEXOTAN [Concomitant]

REACTIONS (4)
  - VERTIGO [None]
  - DYSPNOEA [None]
  - SYNCOPE [None]
  - VOMITING [None]
